FAERS Safety Report 21569811 (Version 6)
Quarter: 2023Q1

REPORT INFORMATION
  Report Type: Spontaneous
  Country: DE (occurrence: DE)
  Receive Date: 20221109
  Receipt Date: 20230117
  Transmission Date: 20230418
  Serious: Yes (Hospitalization)
  Sender: FDA-Public Use
  Company Number: DE-ABBVIE-4192591

PATIENT
  Age: 57 Year
  Sex: Female
  Weight: 72 kg

DRUGS (2)
  1. RINVOQ [Suspect]
     Active Substance: UPADACITINIB
     Indication: Rheumatoid arthritis
     Dosage: FORM STRENGTH :15 MG
     Route: 048
     Dates: start: 20200626, end: 20220921
  2. CELECOXIB [Concomitant]
     Active Substance: CELECOXIB
     Indication: Product used for unknown indication
     Route: 048
     Dates: start: 20190107, end: 20220907

REACTIONS (3)
  - Gastrointestinal haemorrhage [Recovered/Resolved]
  - Large intestinal ulcer [Unknown]
  - Diverticulum [Recovered/Resolved]

NARRATIVE: CASE EVENT DATE: 20220906
